FAERS Safety Report 14306839 (Version 1)
Quarter: 2017Q4

REPORT INFORMATION
  Report Type: Spontaneous
  Country: GR (occurrence: GR)
  Receive Date: 20171220
  Receipt Date: 20171220
  Transmission Date: 20180321
  Serious: Yes (Other)
  Sender: FDA-Public Use
  Company Number: GR-ASTRAZENECA-2017SF26620

PATIENT
  Age: 64 Year
  Sex: Female

DRUGS (1)
  1. DURVALUMAB. [Suspect]
     Active Substance: DURVALUMAB
     Indication: NON-SMALL CELL LUNG CANCER METASTATIC
     Route: 042

REACTIONS (2)
  - Psoriasis [Recovered/Resolved]
  - Guttate psoriasis [Recovered/Resolved]
